FAERS Safety Report 5524565-1 (Version None)
Quarter: 2007Q4

REPORT INFORMATION
  Report Type: 
  Country: None (occurrence: None)
  Receive Date: 20071123
  Receipt Date: 20071113
  Transmission Date: 20080405
  Serious: Yes (Hospitalization)
  Sender: FDA-Public Use
  Company Number: CN-JNJFOC-20071100432

PATIENT
  Sex: Male
  Weight: 3.5 kg

DRUGS (1)
  1. NIZORAL [Suspect]
     Indication: BODY TINEA
     Route: 048

REACTIONS (3)
  - DRUG PRESCRIBING ERROR [None]
  - HEPATIC FUNCTION ABNORMAL [None]
  - HYPERSOMNIA [None]
